FAERS Safety Report 22598296 (Version 1)
Quarter: 2023Q2

REPORT INFORMATION
  Report Type: Spontaneous
  Country: US (occurrence: US)
  Receive Date: 20230614
  Receipt Date: 20230614
  Transmission Date: 20230722
  Serious: No
  Sender: FDA-Public Use
  Company Number: US-ARDELYX-2023ARDX000234

PATIENT

DRUGS (1)
  1. IBSRELA [Suspect]
     Active Substance: TENAPANOR HYDROCHLORIDE
     Indication: Irritable bowel syndrome
     Dosage: 50 MILLIGRAM, BID
     Route: 048
     Dates: start: 20230502

REACTIONS (7)
  - Nausea [Recovering/Resolving]
  - Muscle spasms [Recovering/Resolving]
  - Musculoskeletal chest pain [Recovering/Resolving]
  - Chest pain [Recovering/Resolving]
  - Insomnia [Recovering/Resolving]
  - Abdominal distension [Recovering/Resolving]
  - Product dose omission issue [Unknown]

NARRATIVE: CASE EVENT DATE: 20230502
